FAERS Safety Report 14891916 (Version 1)
Quarter: 2018Q2

REPORT INFORMATION
  Report Type: Spontaneous
  Country: US (occurrence: US)
  Receive Date: 20180426
  Receipt Date: 20180426
  Transmission Date: 20180711
  Serious: Yes (Hospitalization)
  Sender: FDA-Public Use
  Company Number: None

PATIENT
  Age: 22 Year
  Sex: Female

DRUGS (12)
  1. MORPHINE SUL [Concomitant]
     Active Substance: MORPHINE SULFATE
  2. ACYCLOVIR. [Concomitant]
     Active Substance: ACYCLOVIR
  3. GABAPENTIN. [Concomitant]
     Active Substance: GABAPENTIN
  4. LORAZEPAM. [Concomitant]
     Active Substance: LORAZEPAM
  5. CLONIDINE. [Concomitant]
     Active Substance: CLONIDINE
  6. SSKI [Concomitant]
     Active Substance: POTASSIUM IODIDE
  7. AMNESTEEM [Concomitant]
     Active Substance: ISOTRETINOIN
  8. LEUKINE [Suspect]
     Active Substance: SARGRAMOSTIM
     Indication: ADRENAL GLAND CANCER
     Route: 058
     Dates: start: 20180303
  9. GRANISETRON [Concomitant]
     Active Substance: GRANISETRON
  10. METHADONE [Concomitant]
     Active Substance: METHADONE HYDROCHLORIDE
  11. FLUCONZOLE [Concomitant]
  12. PROMETHAZINE [Concomitant]
     Active Substance: PROMETHAZINE\PROMETHAZINE HYDROCHLORIDE

REACTIONS (2)
  - Malaise [None]
  - Weight decreased [None]

NARRATIVE: CASE EVENT DATE: 201804
